FAERS Safety Report 18509769 (Version 1)
Quarter: 2020Q4

REPORT INFORMATION
  Report Type: Spontaneous
  Country: US (occurrence: US)
  Receive Date: 20201114
  Receipt Date: 20201114
  Transmission Date: 20210114
  Serious: Yes (Hospitalization)
  Sender: FDA-Public Use
  Company Number: None

PATIENT
  Age: 65 Year
  Sex: Female
  Weight: 71.8 kg

DRUGS (2)
  1. MITOMYCIN C [Suspect]
     Active Substance: MITOMYCIN
     Dates: end: 20201020
  2. 5-FLUOROURACIL (5-FU) (19893) [Suspect]
     Active Substance: FLUOROURACIL
     Dates: end: 20201024

REACTIONS (6)
  - Pyrexia [None]
  - Enteritis [None]
  - Fatigue [None]
  - Hypophagia [None]
  - Nausea [None]
  - Abdominal pain [None]

NARRATIVE: CASE EVENT DATE: 20201105
